FAERS Safety Report 11852625 (Version 1)
Quarter: 2015Q4

REPORT INFORMATION
  Report Type: Spontaneous
  Country: US (occurrence: US)
  Receive Date: 20151218
  Receipt Date: 20151218
  Transmission Date: 20160305
  Serious: Yes (Other)
  Sender: FDA-Public Use
  Company Number: US-PFIZER INC-2015436719

PATIENT
  Age: 77 Year
  Sex: Female

DRUGS (1)
  1. AXITINIB [Suspect]
     Active Substance: AXITINIB
     Indication: METASTASES TO LUNG
     Dosage: UNK, CYCLIC
     Dates: start: 201212

REACTIONS (2)
  - Polycythaemia [Recovered/Resolved]
  - Neurotoxicity [Unknown]
